FAERS Safety Report 8849199 (Version 1)
Quarter: 2012Q4

REPORT INFORMATION
  Report Type: Spontaneous
  Country: US (occurrence: None)
  Receive Date: 20121017
  Receipt Date: 20121017
  Transmission Date: 20130627
  Serious: Yes (Hospitalization)
  Sender: FDA-Public Use
  Company Number: DKLU1085163

PATIENT
  Age: 2 Year
  Sex: Male

DRUGS (1)
  1. SABRIL [Suspect]
     Indication: INFANTILE SPASMS
     Route: 048

REACTIONS (1)
  - Brain operation [None]
